FAERS Safety Report 9850989 (Version 1)
Quarter: 2014Q1

REPORT INFORMATION
  Report Type: Report from Study
  Country: GB (occurrence: GB)
  Receive Date: 20140128
  Receipt Date: 20140128
  Transmission Date: 20141002
  Serious: Yes (Death, Hospitalization)
  Sender: FDA-Public Use
  Company Number: GB-PFIZER INC-2014024413

PATIENT
  Age: 59 Year
  Sex: Male
  Weight: 79.9 kg

DRUGS (18)
  1. DEXAMETHASONE SODIUM PHOSPHATE [Suspect]
     Indication: PLASMA CELL MYELOMA
     Dosage: 40 MG, DAILY
     Route: 048
     Dates: start: 20120901
  2. REVLIMID [Suspect]
     Indication: PLASMA CELL MYELOMA
     Dosage: 25 MG, DAILY
     Route: 048
     Dates: start: 20120901
  3. QUININE SULPHATE [Concomitant]
     Dosage: UNK
     Route: 065
     Dates: start: 20120907
  4. CO-CODAMOL [Concomitant]
     Dosage: UNK
     Route: 065
     Dates: start: 20111012
  5. ZOPICLONE [Concomitant]
     Dosage: UNK
     Route: 065
     Dates: start: 20120904
  6. PARACETAMOL [Concomitant]
     Dosage: UNK
     Route: 065
     Dates: start: 20130101
  7. AUGMENTIN [Concomitant]
     Dosage: UNK
     Route: 065
     Dates: start: 20130104
  8. FLUCONAZOLE [Concomitant]
     Dosage: UNK
     Route: 065
     Dates: start: 20120901
  9. ACICLOVIR [Concomitant]
     Dosage: UNK
     Route: 065
     Dates: start: 20120901
  10. OMEPRAZOLE [Concomitant]
     Dosage: UNK
     Route: 065
     Dates: start: 20120901
  11. OMEPRAZOLE [Concomitant]
     Dosage: UNK
     Route: 065
     Dates: start: 20130517
  12. DALTEPARIN [Concomitant]
     Dosage: UNK
     Route: 065
     Dates: start: 20120901
  13. ZOMETA [Concomitant]
     Dosage: UNK
     Route: 065
     Dates: start: 201109
  14. CO-TRIMOXAZOLE [Concomitant]
     Dosage: UNK
     Route: 065
     Dates: start: 20120831
  15. MEROPENEM [Concomitant]
     Dosage: UNK
     Route: 065
     Dates: start: 20130503
  16. GRANULOCYTE COLONY-STIMULATING FACTOR NOS [Concomitant]
     Dosage: UNK
     Route: 065
     Dates: start: 20130618
  17. ASPIRINE [Concomitant]
     Dosage: UNK
     Route: 065
     Dates: start: 20130705
  18. TIOCONAZOLE [Concomitant]
     Dosage: UNK
     Route: 065
     Dates: start: 20130913

REACTIONS (1)
  - Upper respiratory tract infection [Fatal]
